FAERS Safety Report 5944427-5 (Version None)
Quarter: 2008Q4

REPORT INFORMATION
  Report Type: 
  Country: None (occurrence: None)
  Receive Date: 20081107
  Receipt Date: 20081102
  Transmission Date: 20090506
  Serious: Yes (Death, Hospitalization)
  Sender: FDA-Public Use
  Company Number: NZ-BAYER-200828305GPV

PATIENT
  Age: 64 Year
  Sex: Male
  Weight: 100 kg

DRUGS (11)
  1. FLUDARABINE PHOSPHATE [Suspect]
     Indication: CHRONIC LYMPHOCYTIC LEUKAEMIA
     Route: 048
     Dates: start: 20080401, end: 20080403
  2. FLUDARABINE PHOSPHATE [Suspect]
     Route: 048
     Dates: start: 20080603, end: 20080605
  3. CYCLOPHOSPHAMIDE [Concomitant]
     Indication: CHRONIC LYMPHOCYTIC LEUKAEMIA
     Route: 048
     Dates: start: 20080401, end: 20080403
  4. CYCLOPHOSPHAMIDE [Concomitant]
     Route: 048
     Dates: start: 20080603, end: 20080605
  5. CO-TRIMOXAZOLE [Concomitant]
     Indication: ANTIFUNGAL PROPHYLAXIS
     Dosage: TOTAL DAILY DOSE: 960 MG
     Route: 048
     Dates: start: 20080401
  6. CIPROFLOXACIN [Concomitant]
     Indication: PROPHYLAXIS
     Dosage: TOTAL DAILY DOSE: 1000 MG
     Route: 065
     Dates: start: 20080613, end: 20080626
  7. FLUCONAZOLE [Concomitant]
     Indication: PROPHYLAXIS
     Route: 065
     Dates: start: 20080613, end: 20080626
  8. FOLIC ACID [Concomitant]
     Route: 048
  9. ZINC [Concomitant]
     Indication: SUPPLEMENTATION THERAPY
     Route: 048
  10. VITAMIN D [Concomitant]
     Indication: VITAMIN SUPPLEMENTATION
     Route: 048
  11. INSULIN [Concomitant]
     Indication: HYPERKALAEMIA
     Dates: start: 20080705, end: 20080705

REACTIONS (4)
  - ANAEMIA HAEMOLYTIC AUTOIMMUNE [None]
  - CARDIAC ARREST [None]
  - HYPERKALAEMIA [None]
  - RENAL FAILURE [None]
